FAERS Safety Report 23968407 (Version 2)
Quarter: 2024Q3

REPORT INFORMATION
  Report Type: Spontaneous
  Country: EE (occurrence: EE)
  Receive Date: 20240612
  Receipt Date: 20240702
  Transmission Date: 20241017
  Serious: Yes (Other)
  Sender: MERCK
  Company Number: EE-009507513-2406EST002471

PATIENT
  Age: 57 Year
  Sex: Female

DRUGS (7)
  1. KEYTRUDA [Suspect]
     Active Substance: PEMBROLIZUMAB
     Indication: Triple negative breast cancer
     Dosage: 200 MILLIGRAM, Q3W
     Dates: start: 20230529, end: 202312
  2. KEYTRUDA [Suspect]
     Active Substance: PEMBROLIZUMAB
     Dosage: 200 MILLIGRAM, Q3W
     Dates: end: 20240604
  3. EPIRUBICIN [Suspect]
     Active Substance: EPIRUBICIN
     Indication: Triple negative breast cancer
     Dosage: 70 MILLIGRAM/SQ. METER
     Dates: start: 20230529, end: 20230803
  4. CYCLOPHOSPHAMIDE [Suspect]
     Active Substance: CYCLOPHOSPHAMIDE
     Indication: Triple negative breast cancer
     Dosage: 530 MILLIGRAM/SQ. METER
     Dates: start: 20230824, end: 20231124
  5. CARBOPLATIN [Suspect]
     Active Substance: CARBOPLATIN
     Indication: Triple negative breast cancer
     Dosage: 5MG/ML/MIN WEEKLY
     Dates: start: 20230824, end: 20231124
  6. PACLITAXEL [Suspect]
     Active Substance: PACLITAXEL
     Indication: Triple negative breast cancer
     Dosage: 80 MILLIGRAM/SQ. METER
     Dates: start: 20230824, end: 20231124
  7. XELODA [Suspect]
     Active Substance: CAPECITABINE
     Indication: Triple negative breast cancer
     Dosage: UNK

REACTIONS (2)
  - Phrenic nerve injury [Unknown]
  - Acquired diaphragmatic eventration [Unknown]

NARRATIVE: CASE EVENT DATE: 20240101
